FAERS Safety Report 5594114-0 (Version None)
Quarter: 2008Q1

REPORT INFORMATION
  Report Type: 
  Country: None (occurrence: None)
  Receive Date: 20080116
  Receipt Date: 20080104
  Transmission Date: 20080703
  Serious: Yes (Other)
  Sender: FDA-Public Use
  Company Number: US-PFIZER INC-2007096172

PATIENT
  Sex: Female
  Weight: 52.2 kg

DRUGS (3)
  1. CHANTIX [Suspect]
     Indication: SMOKING CESSATION THERAPY
     Route: 048
     Dates: start: 20071104, end: 20071111
  2. CONTRACEPTIVE, UNSPECIFIED [Concomitant]
  3. ALLEGRA [Concomitant]

REACTIONS (2)
  - PRURITUS [None]
  - SWOLLEN TONGUE [None]
